FAERS Safety Report 7043227-5 (Version None)
Quarter: 2010Q4

REPORT INFORMATION
  Report Type: 
  Country: None (occurrence: None)
  Receive Date: 20101013
  Receipt Date: 20090910
  Transmission Date: 20110411
  Serious: No
  Sender: FDA-Public Use
  Company Number: US-ASTRAZENECA-2009SE12510

PATIENT
  Age: 85 Year
  Sex: Male

DRUGS (4)
  1. SYMBICORT [Suspect]
     Dosage: 80/4.5 UG 2 PUFFS BID
     Route: 055
     Dates: start: 20090903
  2. FOLTX [Concomitant]
  3. EYE DROPS [Concomitant]
  4. ZOCOR [Concomitant]

REACTIONS (2)
  - DYSPHONIA [None]
  - VOCAL CORD DISORDER [None]
